FAERS Safety Report 5273263-0 (Version None)
Quarter: 2007Q1

REPORT INFORMATION
  Report Type: 
  Country: None (occurrence: None)
  Receive Date: 20070319
  Receipt Date: 20070302
  Transmission Date: 20070707
  Serious: Yes (Hospitalization)
  Sender: FDA-Public Use
  Company Number: 2007BM000021

PATIENT
  Age: 8 Year
  Sex: Male

DRUGS (5)
  1. PREDNISOLONE [Suspect]
     Indication: IMMUNOSUPPRESSION
  2. TACROLIMUS (TACROLIMUS) [Suspect]
     Indication: IMMUNOSUPPRESSION
  3. ORAPRED [Suspect]
  4. KETOCONAZOLE [Concomitant]
  5. BETAMETHASONE VALERATE [Concomitant]

REACTIONS (1)
  - CUTANEOUS LEISHMANIASIS [None]
